FAERS Safety Report 25273109 (Version 1)
Quarter: 2025Q2

REPORT INFORMATION
  Report Type: Spontaneous
  Country: US (occurrence: US)
  Receive Date: 20250506
  Receipt Date: 20250506
  Transmission Date: 20250716
  Serious: No
  Sender: ALEXION PHARMACEUTICALS
  Company Number: US-ASTRAZENECA-202504USA027840US

PATIENT

DRUGS (3)
  1. FASLODEX [Suspect]
     Active Substance: FULVESTRANT
     Route: 065
  2. FASLODEX [Suspect]
     Active Substance: FULVESTRANT
  3. IBRANCE [Concomitant]
     Active Substance: PALBOCICLIB
     Indication: Breast cancer
     Dosage: 75 MILLIGRAM, QD

REACTIONS (8)
  - Fatigue [Not Recovered/Not Resolved]
  - Asthenia [Not Recovered/Not Resolved]
  - Diarrhoea [Not Recovered/Not Resolved]
  - Full blood count decreased [Unknown]
  - Blood creatinine increased [Not Recovered/Not Resolved]
  - Nausea [Not Recovered/Not Resolved]
  - Arthralgia [Not Recovered/Not Resolved]
  - Anaemia [Not Recovered/Not Resolved]
